APPROVED DRUG PRODUCT: AMINOCAPROIC ACID
Active Ingredient: AMINOCAPROIC ACID
Strength: 500MG
Dosage Form/Route: TABLET;ORAL
Application: A209060 | Product #001 | TE Code: AB
Applicant: SUNNY PHARMTECH INC
Approved: Nov 27, 2018 | RLD: No | RS: No | Type: RX